FAERS Safety Report 10493455 (Version 1)
Quarter: 2014Q4

REPORT INFORMATION
  Report Type: Spontaneous
  Country: US (occurrence: US)
  Receive Date: 20141002
  Receipt Date: 20141002
  Transmission Date: 20150528
  Serious: No
  Sender: FDA-Public Use
  Company Number: US-GLAXOSMITHKLINE-A1084245A

PATIENT
  Sex: Male

DRUGS (3)
  1. ADVAIR HFA [Suspect]
     Active Substance: FLUTICASONE PROPIONATE\SALMETEROL XINAFOATE
     Indication: CHRONIC OBSTRUCTIVE PULMONARY DISEASE
     Dosage: 1PUFF TWICE PER DAY
     Route: 055
     Dates: start: 2010
  2. VENTOLIN [Concomitant]
     Active Substance: ALBUTEROL SULFATE
  3. LOVASTATIN. [Concomitant]
     Active Substance: LOVASTATIN

REACTIONS (8)
  - Pain [Not Recovered/Not Resolved]
  - Skin lesion [Not Recovered/Not Resolved]
  - Hypersensitivity [Not Recovered/Not Resolved]
  - Burning sensation [Not Recovered/Not Resolved]
  - Scratch [Not Recovered/Not Resolved]
  - Urticaria [Not Recovered/Not Resolved]
  - Product quality issue [Unknown]
  - Pruritus [Not Recovered/Not Resolved]
